FAERS Safety Report 13184466 (Version 1)
Quarter: 2017Q1

REPORT INFORMATION
  Report Type: Spontaneous
  Country: CA (occurrence: CA)
  Receive Date: 20170203
  Receipt Date: 20170203
  Transmission Date: 20170428
  Serious: Yes (Other)
  Sender: FDA-Public Use
  Company Number: CA-FRESENIUS KABI-FK201700921

PATIENT
  Age: 9 Week

DRUGS (3)
  1. PHENYLEPHRINE [Suspect]
     Active Substance: PHENYLEPHRINE\PHENYLEPHRINE HYDROCHLORIDE
     Indication: INVESTIGATION
     Route: 031
  2. CYCLOPENTOLATE. [Suspect]
     Active Substance: CYCLOPENTOLATE
     Indication: INVESTIGATION
     Route: 031
  3. CAFFEINE CITRATE (MANUFACTURER UNKNOWN) (CAFFEINE CITRATE) (CAFFEINE CITRATE) [Suspect]
     Active Substance: CAFFEINE CITRATE
     Indication: INFANTILE APNOEA
     Route: 048

REACTIONS (1)
  - Arrhythmia supraventricular [Recovered/Resolved]
